FAERS Safety Report 13230469 (Version 1)
Quarter: 2017Q1

REPORT INFORMATION
  Report Type: Spontaneous
  Country: US (occurrence: US)
  Receive Date: 20170214
  Receipt Date: 20170214
  Transmission Date: 20170428
  Serious: Yes (Hospitalization)
  Sender: FDA-Public Use
  Company Number: US-ASTRAZENECA-2017SE14503

PATIENT
  Age: 731 Month
  Sex: Male
  Weight: 96.2 kg

DRUGS (4)
  1. ASPIRIN. [Concomitant]
     Active Substance: ASPIRIN
     Route: 048
  2. CRESTOR [Suspect]
     Active Substance: ROSUVASTATIN CALCIUM
     Indication: VASCULAR DEVICE USER
     Dosage: GENERIC, 5 MG DAILY
     Route: 048
     Dates: start: 201608
  3. BRILINTA [Suspect]
     Active Substance: TICAGRELOR
     Indication: STENT PLACEMENT
     Route: 048
     Dates: start: 20170201
  4. CRESTOR [Suspect]
     Active Substance: ROSUVASTATIN CALCIUM
     Indication: VASCULAR DEVICE USER
     Route: 048
     Dates: start: 200912, end: 201608

REACTIONS (4)
  - Product use issue [Unknown]
  - Off label use [Unknown]
  - Tongue injury [Not Recovered/Not Resolved]
  - Coronary artery occlusion [Recovered/Resolved]

NARRATIVE: CASE EVENT DATE: 200912
